FAERS Safety Report 7608945-6 (Version None)
Quarter: 2011Q3

REPORT INFORMATION
  Report Type: 
  Country: None (occurrence: None)
  Receive Date: 20110714
  Receipt Date: 20110708
  Transmission Date: 20111222
  Serious: Yes (Death)
  Sender: FDA-Public Use
  Company Number: CA-GLAXOSMITHKLINE-A0936394A

PATIENT
  Age: 72 Year
  Sex: Female
  Weight: 68.2 kg

DRUGS (10)
  1. DIAMICRON [Concomitant]
     Route: 065
  2. SLOW-K [Concomitant]
     Route: 065
  3. RAMIPRIL [Concomitant]
     Route: 065
  4. AVANDIA [Suspect]
     Indication: PRODUCT USED FOR UNKNOWN INDICATION
     Dosage: 4MG TWICE PER DAY
     Route: 048
  5. PROVERA [Concomitant]
     Route: 065
  6. ASPIRIN [Concomitant]
     Route: 065
  7. FUROSEMIDE [Concomitant]
     Route: 065
  8. GLUCONORM [Concomitant]
     Route: 065
  9. LIPITOR [Concomitant]
     Route: 065
  10. METOPROLOL SUCCINATE [Concomitant]
     Route: 065

REACTIONS (7)
  - ASTHENIA [None]
  - DYSPNOEA [None]
  - PERIPHERAL COLDNESS [None]
  - DEATH [None]
  - HEART RATE INCREASED [None]
  - THROMBOSIS [None]
  - CYANOSIS [None]
